FAERS Safety Report 16150943 (Version 1)
Quarter: 2019Q2

REPORT INFORMATION
  Report Type: Spontaneous
  Country: US (occurrence: US)
  Receive Date: 20190402
  Receipt Date: 20190402
  Transmission Date: 20190711
  Serious: Yes (Life-Threatening, Hospitalization)
  Sender: FDA-Public Use
  Company Number: None

PATIENT
  Age: 84 Year
  Sex: Female
  Weight: 55.6 kg

DRUGS (7)
  1. APIXABAN [Suspect]
     Active Substance: APIXABAN
     Indication: PULMONARY EMBOLISM
     Route: 048
     Dates: start: 20190305, end: 20190320
  2. FUROSEMIDE 40MG PO DAILY [Concomitant]
     Dates: start: 20190312, end: 20190320
  3. CARVEDILOL 3.125MG PO BID [Concomitant]
     Active Substance: CARVEDILOL
     Dates: start: 20190313, end: 20190329
  4. APAP 650MG PO Q6H PRN [Concomitant]
     Dates: start: 20190319
  5. LACTOBACILLUS ACIDOPHILUS 1 TAB PO DAILY [Concomitant]
     Dates: start: 20190318
  6. ZETIA 10MG PO DAILY [Concomitant]
     Dates: start: 20190302, end: 20190320
  7. HEPARIN INFUSION [Concomitant]
     Dates: start: 20190320, end: 20190321

REACTIONS (4)
  - Blood bilirubin increased [None]
  - Abdominal pain upper [None]
  - International normalised ratio increased [None]
  - Transaminases increased [None]

NARRATIVE: CASE EVENT DATE: 20190320
